FAERS Safety Report 4292141-7 (Version None)
Quarter: 2004Q1

REPORT INFORMATION
  Report Type: 
  Country: None (occurrence: None)
  Receive Date: 20040211
  Receipt Date: 20031216
  Transmission Date: 20041129
  Serious: No
  Sender: FDA-Public Use
  Company Number: US-GLAXOSMITHKLINE-A0443334A

PATIENT
  Age: 62 Year
  Sex: Female

DRUGS (6)
  1. LAMICTAL [Suspect]
     Indication: BIPOLAR DISORDER
     Dosage: 25MG ALTERNATE DAYS
     Route: 048
     Dates: start: 20031201, end: 20031213
  2. DEPAKOTE [Concomitant]
     Dosage: 2000MG PER DAY
     Route: 065
  3. ZYPREXA [Concomitant]
  4. ARICEPT [Concomitant]
  5. LUVOX [Concomitant]
  6. FUROSEMIDE [Concomitant]

REACTIONS (3)
  - OEDEMA PERIPHERAL [None]
  - RASH GENERALISED [None]
  - SKIN DISCOLOURATION [None]
